FAERS Safety Report 21835920 (Version 2)
Quarter: 2023Q1

REPORT INFORMATION
  Report Type: Report from Study
  Country: US (occurrence: US)
  Receive Date: 20230109
  Receipt Date: 20230110
  Transmission Date: 20230417
  Serious: No
  Sender: FDA-Public Use
  Company Number: US-002147023-NVSC2023US003054

PATIENT
  Sex: Female

DRUGS (1)
  1. MAYZENT [Suspect]
     Active Substance: SIPONIMOD
     Indication: Product used for unknown indication
     Dosage: 2 MG, QD (STARTED APPROXIMATELY ON 27 DEC)
     Route: 048

REACTIONS (3)
  - Muscle tightness [Unknown]
  - Vision blurred [Recovered/Resolved]
  - Limb discomfort [Unknown]
